FAERS Safety Report 21500450 (Version 3)
Quarter: 2022Q4

REPORT INFORMATION
  Report Type: Spontaneous
  Country: US (occurrence: US)
  Receive Date: 20221025
  Receipt Date: 20221216
  Transmission Date: 20230113
  Serious: No
  Sender: FDA-Public Use
  Company Number: US-NOVARTISTESTPH-NVSC2022US235708

PATIENT
  Sex: Female

DRUGS (1)
  1. XIIDRA [Suspect]
     Active Substance: LIFITEGRAST
     Indication: Product used for unknown indication
     Dosage: UNK, BID ( 1 DROP PER EYE)
     Route: 065

REACTIONS (4)
  - Vision blurred [Unknown]
  - Eye pruritus [Unknown]
  - Eye pain [Unknown]
  - Product packaging quantity issue [Unknown]
